FAERS Safety Report 4578785-3 (Version None)
Quarter: 2005Q1

REPORT INFORMATION
  Report Type: 
  Country: None (occurrence: None)
  Receive Date: 20050211
  Receipt Date: 20050131
  Transmission Date: 20050727
  Serious: Yes (Disabling)
  Sender: FDA-Public Use
  Company Number: JP-JNJFOC-20050200370

PATIENT
  Age: 75 Year
  Sex: Male

DRUGS (1)
  1. TAVANIC [Suspect]
     Route: 049
     Dates: start: 20041101, end: 20041101

REACTIONS (3)
  - ARTHRALGIA [None]
  - MUSCLE CONTRACTURE [None]
  - MYALGIA [None]
